FAERS Safety Report 4704534-1 (Version None)
Quarter: 2005Q2

REPORT INFORMATION
  Report Type: 
  Country: None (occurrence: None)
  Receive Date: 20050629
  Receipt Date: 20050617
  Transmission Date: 20051028
  Serious: Yes (Hospitalization, Other)
  Sender: FDA-Public Use
  Company Number: 8010876

PATIENT
  Age: 48 Year
  Sex: Female

DRUGS (3)
  1. KEPPRA [Suspect]
     Indication: EPILEPSY
     Dosage: 1000 MG 2/D PO
     Route: 048
     Dates: start: 20050605, end: 20050616
  2. VALPROIC ACID [Suspect]
     Dates: end: 20050606
  3. CARBAMAZEPINE [Concomitant]

REACTIONS (6)
  - AGITATION [None]
  - CONFUSIONAL STATE [None]
  - HYPOXIA [None]
  - LOSS OF CONSCIOUSNESS [None]
  - LUNG INFILTRATION [None]
  - PNEUMONITIS [None]
